FAERS Safety Report 15706507 (Version 2)
Quarter: 2018Q4

REPORT INFORMATION
  Report Type: Spontaneous
  Country: BR (occurrence: BR)
  Receive Date: 20181210
  Receipt Date: 20181228
  Transmission Date: 20190205
  Serious: Yes (Other)
  Sender: FDA-Public Use
  Company Number: BR-SA-2018SA321789

PATIENT
  Age: 59 Year
  Sex: Female
  Weight: 112.8 kg

DRUGS (16)
  1. CONCOR [Concomitant]
     Active Substance: BISOPROLOL FUMARATE
     Indication: CARDIAC DISORDER
     Dosage: 1 DF, QD
     Route: 048
     Dates: start: 2015
  2. PROCORALAN [Concomitant]
     Active Substance: IVABRADINE
     Indication: CARDIAC DISORDER
     Dosage: 1 DF, BID
     Route: 048
     Dates: start: 2015
  3. ENTRESTO [Concomitant]
     Active Substance: SACUBITRIL\VALSARTAN
     Indication: CARDIAC FAILURE
     Dosage: 1 DF, BID
     Route: 048
     Dates: start: 2018
  4. ZYLORIC [Concomitant]
     Active Substance: ALLOPURINOL
     Indication: BLOOD URIC ACID
     Dosage: 1 DF, QD
     Route: 048
     Dates: start: 2018
  5. LASIX [Concomitant]
     Active Substance: FUROSEMIDE
     Indication: CARDIAC DISORDER
     Dosage: 1 DF, QID
     Route: 048
     Dates: start: 2015
  6. ROSUCOR [Concomitant]
     Active Substance: ROSUVASTATIN CALCIUM
     Indication: BLOOD CHOLESTEROL
     Dosage: 1 DF, QD
     Route: 048
  7. LEVOTHYROXINE. [Concomitant]
     Active Substance: LEVOTHYROXINE
     Indication: THYROID DISORDER
     Dosage: 1 TABLET IN FASTING, USUALLY USES AT DAWN
     Route: 048
  8. LANTUS [Suspect]
     Active Substance: INSULIN GLARGINE
     Indication: DIABETES MELLITUS
     Dosage: 42 IU IN THE MORNING AND 22 IU IN THE EVENING
     Route: 058
  9. RANITIDINE. [Concomitant]
     Active Substance: RANITIDINE
     Indication: GASTRIC DISORDER
     Dosage: 1 DF, BID
     Route: 048
     Dates: start: 2015
  10. AMIODARONE [Concomitant]
     Active Substance: AMIODARONE
     Indication: CARDIAC DISORDER
     Dosage: 1 DF, QD
     Route: 048
     Dates: start: 2015
  11. TRAYENTA DUO [Concomitant]
     Active Substance: LINAGLIPTIN\METFORMIN HYDROCHLORIDE
     Indication: DIABETES MELLITUS
     Dosage: 1 DF, QD
     Route: 048
     Dates: start: 2006
  12. CONCOR [Concomitant]
     Active Substance: BISOPROLOL FUMARATE
     Indication: CARDIAC DISORDER
     Dosage: 1 DF, QD
     Route: 048
     Dates: start: 2015
  13. ASPIRIN [ACETYLSALICYLIC ACID] [Concomitant]
     Active Substance: ASPIRIN
     Indication: CARDIAC DISORDER
     Dosage: 1 DF, QD
     Route: 048
     Dates: start: 2012
  14. ADDERA D3 [Concomitant]
     Active Substance: CHOLECALCIFEROL
     Indication: VITAMIN SUPPLEMENTATION
     Dosage: 1 TABLET IN EVERY 10 DAYS
     Route: 048
     Dates: start: 2017
  15. B COMPLEX [VITAMIN B COMPLEX] [Concomitant]
     Indication: VITAMIN SUPPLEMENTATION
     Dosage: 1 DF, BID
     Route: 048
     Dates: start: 2017
  16. ELIQUIS [Concomitant]
     Active Substance: APIXABAN
     Indication: CARDIAC DISORDER
     Dosage: 1 DF, BID
     Route: 048
     Dates: start: 201805

REACTIONS (12)
  - Asthenia [Unknown]
  - Drug ineffective [Unknown]
  - Tremor [Unknown]
  - Cardiac disorder [Unknown]
  - Blood glucose increased [Unknown]
  - Silent myocardial infarction [Unknown]
  - Memory impairment [Unknown]
  - Expired product administered [Unknown]
  - Product dose omission [Unknown]
  - Malaise [Unknown]
  - Product use issue [Unknown]
  - Device issue [Unknown]

NARRATIVE: CASE EVENT DATE: 2012
